FAERS Safety Report 5558416-6 (Version None)
Quarter: 2007Q4

REPORT INFORMATION
  Report Type: 
  Country: None (occurrence: None)
  Receive Date: 20071214
  Receipt Date: 20071114
  Transmission Date: 20080405
  Serious: No
  Sender: FDA-Public Use
  Company Number: US-ABBOTT-07P-163-0372953-00

PATIENT
  Sex: Female
  Weight: 97 kg

DRUGS (10)
  1. HUMIRA [Suspect]
     Indication: RHEUMATOID ARTHRITIS
     Route: 058
     Dates: start: 20070618, end: 20071025
  2. FOLIC ACID [Concomitant]
     Indication: DRUG USE FOR UNKNOWN INDICATION
     Route: 048
  3. HYDROCHLOROTHIAZIDE [Concomitant]
     Indication: DIURETIC THERAPY
     Route: 048
  4. ESTROGENS CONJUGATED [Concomitant]
     Indication: HORMONE THERAPY
     Route: 048
  5. VALSARTAN [Concomitant]
     Indication: BLOOD PRESSURE
     Route: 048
  6. ALLOPURINOL [Concomitant]
     Indication: RHEUMATOID ARTHRITIS
     Route: 048
  7. METOPROLOL SUCCINATE [Concomitant]
     Indication: BLOOD PRESSURE
     Route: 048
  8. POTASSIUM CHLORIDE [Concomitant]
     Indication: SUPPLEMENTATION THERAPY
     Route: 048
  9. PREDNISONE [Concomitant]
     Indication: RHEUMATOID ARTHRITIS
     Route: 048
  10. ERGOCALCIFEROL [Concomitant]
     Indication: SUPPLEMENTATION THERAPY
     Route: 048

REACTIONS (7)
  - BURNING SENSATION [None]
  - CHILLS [None]
  - HYPOAESTHESIA [None]
  - LOWER RESPIRATORY TRACT INFECTION [None]
  - NAUSEA [None]
  - NEUROPATHY [None]
  - PARAESTHESIA [None]
